FAERS Safety Report 23035205 (Version 1)
Quarter: 2023Q4

REPORT INFORMATION
  Report Type: Spontaneous
  Country: US (occurrence: US)
  Receive Date: 20231005
  Receipt Date: 20231005
  Transmission Date: 20240109
  Serious: No
  Sender: FDA-Public Use
  Company Number: US-SA-SAC20231003000814

PATIENT
  Age: 40 Year
  Sex: Female
  Weight: 99.32 kg

DRUGS (2)
  1. DUPIXENT [Suspect]
     Active Substance: DUPILUMAB
     Indication: Illness
     Dosage: 300 MG, QW
     Route: 058
  2. DUPIXENT [Suspect]
     Active Substance: DUPILUMAB
     Indication: Eosinophilic oesophagitis

REACTIONS (6)
  - COVID-19 [Unknown]
  - Headache [Unknown]
  - Nasal congestion [Unknown]
  - Myalgia [Unknown]
  - Cough [Unknown]
  - Oedema [Unknown]

NARRATIVE: CASE EVENT DATE: 20230926
